FAERS Safety Report 11132054 (Version 1)
Quarter: 2015Q2

REPORT INFORMATION
  Report Type: Spontaneous
  Country: None (occurrence: None)
  Receive Date: 20150521
  Receipt Date: 20150521
  Transmission Date: 20150821
  Serious: Yes (Disabling)
  Sender: FDA-Public Use
  Company Number: None

PATIENT
  Age: 24 Year
  Sex: Female
  Weight: 83.01 kg

DRUGS (2)
  1. NUVARING [Suspect]
     Active Substance: ETHINYL ESTRADIOL\ETONOGESTREL
     Indication: ENDOMETRIOSIS
     Dates: start: 20090601, end: 20141212
  2. NUVARING [Suspect]
     Active Substance: ETHINYL ESTRADIOL\ETONOGESTREL
     Indication: CONTRACEPTION
     Dates: start: 20090601, end: 20141212

REACTIONS (6)
  - Mood altered [None]
  - Suicidal ideation [None]
  - Pregnancy [None]
  - Maternal exposure before pregnancy [None]
  - Affect lability [None]
  - Depression [None]

NARRATIVE: CASE EVENT DATE: 20141212
